FAERS Safety Report 7658610-4 (Version None)
Quarter: 2011Q3

REPORT INFORMATION
  Report Type: 
  Country: None (occurrence: None)
  Receive Date: 20110802
  Receipt Date: 20110718
  Transmission Date: 20111222
  Serious: Yes (Hospitalization)
  Sender: FDA-Public Use
  Company Number: 2011MA009061

PATIENT
  Age: 36 Year
  Sex: Female
  Weight: 56.6996 kg

DRUGS (52)
  1. TORADOL [Concomitant]
  2. ZOMIG [Concomitant]
  3. LEVAQUIN [Concomitant]
  4. PRENATAL VITAMINS [Concomitant]
  5. DOXYCYCLINE [Concomitant]
  6. PRIMAXIN [Concomitant]
  7. TEMAZEPAM [Concomitant]
  8. AMBIEN [Concomitant]
  9. DOXYCYCLINE [Concomitant]
  10. AUGMENTIN '125' [Concomitant]
  11. STADOL [Concomitant]
  12. MORPHINE [Concomitant]
  13. ZOSYN [Concomitant]
  14. FERROUS SULFATE TAB [Concomitant]
  15. LEXAPRO [Concomitant]
  16. PREVACID [Concomitant]
  17. FLAGYL [Concomitant]
  18. THORAZINE [Concomitant]
  19. DEMEROL [Concomitant]
  20. AMERGE [Concomitant]
  21. ZELNORM [Concomitant]
  22. ELAVIL [Concomitant]
  23. GI COCKTAIL [Concomitant]
  24. INAPSINE [Concomitant]
  25. OMNICEF [Concomitant]
  26. CYMBALTA [Concomitant]
  27. KEPPRA [Concomitant]
  28. METOCLOPRAMIDE [Suspect]
     Indication: GASTROINTESTINAL DISORDER
     Dosage: 10 MG; PO
     Route: 048
  29. TAGAMET [Concomitant]
  30. SUCRALATE [Concomitant]
  31. KLONOPIN [Concomitant]
  32. MOBIC [Concomitant]
  33. NEURONTIN [Concomitant]
  34. DILANTIN [Concomitant]
  35. PHENERGAN HCL [Concomitant]
  36. BACTRIM [Concomitant]
  37. LORCET-HD [Concomitant]
  38. DEMEROL [Concomitant]
  39. ZANTAC [Concomitant]
  40. ROCEPHIN [Concomitant]
  41. TRAZODONE HCL [Concomitant]
  42. NORPLANT [Concomitant]
  43. DEPO-PROVERA [Concomitant]
  44. APAP WITH CODEINE ELIXIR [Concomitant]
  45. ZANTAC [Concomitant]
  46. PEPCID [Concomitant]
  47. BENTYL [Concomitant]
  48. TERUTALONE [Concomitant]
  49. IMITREX [Concomitant]
  50. VISTARIL [Concomitant]
  51. AXERT [Concomitant]
  52. TOPAMAX [Concomitant]

REACTIONS (62)
  - GASTRITIS [None]
  - DRUG ABUSE [None]
  - DRUG SCREEN POSITIVE [None]
  - NERVE INJURY [None]
  - VISION BLURRED [None]
  - CELLULITIS [None]
  - AMENORRHOEA [None]
  - CONVULSION [None]
  - SUBARACHNOID HAEMORRHAGE [None]
  - PANCREATITIS ACUTE [None]
  - MAJOR DEPRESSION [None]
  - MUSCLE TWITCHING [None]
  - HAEMATEMESIS [None]
  - INSOMNIA [None]
  - BRONCHITIS [None]
  - DEHYDRATION [None]
  - DRUG ABUSER [None]
  - ABDOMINAL PAIN [None]
  - PREGNANCY [None]
  - HEAD INJURY [None]
  - GRAND MAL CONVULSION [None]
  - VAGINAL INFECTION [None]
  - HYPOKALAEMIA [None]
  - ANAEMIA [None]
  - ABORTION SPONTANEOUS [None]
  - LEUKOCYTOSIS [None]
  - AMNESIA [None]
  - AGITATION [None]
  - LACERATION [None]
  - WEIGHT DECREASED [None]
  - HYPOAESTHESIA [None]
  - SYNCOPE [None]
  - TARDIVE DYSKINESIA [None]
  - VISUAL IMPAIRMENT [None]
  - HYPEREMESIS GRAVIDARUM [None]
  - ABDOMINAL DISTENSION [None]
  - HAEMATOCHEZIA [None]
  - SUICIDAL IDEATION [None]
  - URINARY TRACT INFECTION [None]
  - HYPERTENSION [None]
  - MUSCULOSKELETAL PAIN [None]
  - CRYING [None]
  - GASTROOESOPHAGEAL REFLUX DISEASE [None]
  - ALCOHOL ABUSE [None]
  - GASTROENTERITIS [None]
  - ANXIETY [None]
  - BREAST TENDERNESS [None]
  - MATERNAL EXPOSURE DURING PREGNANCY [None]
  - ABDOMINAL TENDERNESS [None]
  - COUGH [None]
  - MUSCLE STRAIN [None]
  - FALL [None]
  - VOMITING [None]
  - DEPRESSION [None]
  - NAUSEA [None]
  - PERSONALITY DISORDER [None]
  - FLATULENCE [None]
  - TONGUE DISORDER [None]
  - NEUROPATHY PERIPHERAL [None]
  - CERVICAL DYSPLASIA [None]
  - CYST [None]
  - TREATMENT NONCOMPLIANCE [None]
